FAERS Safety Report 5470902-6 (Version None)
Quarter: 2007Q3

REPORT INFORMATION
  Report Type: 
  Country: None (occurrence: None)
  Receive Date: 20070928
  Receipt Date: 20070926
  Transmission Date: 20080115
  Serious: Yes (Other)
  Sender: FDA-Public Use
  Company Number: US-BRISTOL-MYERS SQUIBB COMPANY-13899042

PATIENT
  Age: 29 Year
  Sex: Female

DRUGS (2)
  1. ABILIFY [Suspect]
     Indication: SCHIZOPHRENIA
     Route: 048
     Dates: start: 20020411
  2. LEXAPRO [Concomitant]
     Route: 048
     Dates: start: 20050322

REACTIONS (2)
  - ABORTION SPONTANEOUS [None]
  - PREGNANCY [None]
